FAERS Safety Report 5753333-0 (Version None)
Quarter: 2008Q2

REPORT INFORMATION
  Report Type: 
  Country: None (occurrence: None)
  Receive Date: 20080530
  Receipt Date: 20080523
  Transmission Date: 20081010
  Serious: Yes (Hospitalization)
  Sender: FDA-Public Use
  Company Number: FR-WYE-H04246908

PATIENT
  Age: 59 Year
  Sex: Male

DRUGS (2)
  1. OROKEN [Suspect]
     Indication: BRONCHITIS
     Dosage: 400 MG /DAILY
     Route: 048
     Dates: start: 20080414, end: 20080418
  2. RULID [Suspect]
     Indication: BRONCHITIS
     Route: 048
     Dates: start: 20080414, end: 20080418

REACTIONS (2)
  - DERMATITIS BULLOUS [None]
  - PHOTOSENSITIVITY REACTION [None]
